FAERS Safety Report 11424123 (Version 3)
Quarter: 2015Q4

REPORT INFORMATION
  Report Type: Report from Study
  Country: FR (occurrence: FR)
  Receive Date: 20150827
  Receipt Date: 20151014
  Transmission Date: 20160304
  Serious: Yes (Death, Hospitalization, Other)
  Sender: FDA-Public Use
  Company Number: FR-GILEAD-2015-0151759

PATIENT
  Age: 76 Year
  Sex: Female
  Weight: 81 kg

DRUGS (3)
  1. BENDAMUSTINE [Suspect]
     Active Substance: BENDAMUSTINE
     Indication: NON-HODGKIN^S LYMPHOMA UNSPECIFIED HISTOLOGY INDOLENT
     Dosage: 180 MG, Q1MONTH
     Route: 042
     Dates: start: 20140429, end: 20141001
  2. IDELALISIB [Suspect]
     Active Substance: IDELALISIB
     Indication: NON-HODGKIN^S LYMPHOMA UNSPECIFIED HISTOLOGY INDOLENT
     Dosage: 150 MG, BID
     Route: 048
     Dates: start: 20140429, end: 20150511
  3. RITUXIMAB [Suspect]
     Active Substance: RITUXIMAB
     Indication: NON-HODGKIN^S LYMPHOMA UNSPECIFIED HISTOLOGY INDOLENT
     Dosage: 750 MG, Q1MONTH
     Route: 042
     Dates: start: 20140429, end: 20140930

REACTIONS (13)
  - Pneumonia [None]
  - General physical health deterioration [None]
  - Neutropenia [None]
  - Superinfection [None]
  - Pneumonia [Fatal]
  - Hypothermia [None]
  - Abnormal behaviour [None]
  - Anaemia [None]
  - Drug ineffective [None]
  - Myelodysplastic syndrome [None]
  - Confusional state [None]
  - Pseudomonas infection [None]
  - Bronchiectasis [None]

NARRATIVE: CASE EVENT DATE: 20150420
